FAERS Safety Report 6192425-1 (Version None)
Quarter: 2009Q2

REPORT INFORMATION
  Report Type: 
  Country: None (occurrence: None)
  Receive Date: 20090513
  Receipt Date: 20090430
  Transmission Date: 20091009
  Serious: No
  Sender: FDA-Public Use
  Company Number: 2009-193838-NL

PATIENT
  Age: 80 Year
  Sex: Female

DRUGS (6)
  1. MIRTAZAPINE [Suspect]
     Indication: DEPRESSIVE DELUSION
     Dosage: 15 MG ; 30 MG
     Dates: start: 20071017, end: 20071024
  2. MIRTAZAPINE [Suspect]
     Indication: DEPRESSIVE DELUSION
     Dosage: 15 MG ; 30 MG
     Dates: start: 20071025
  3. RISPERIDONE [Suspect]
     Indication: DELUSION
     Dosage: 1 MG ; 2 MG
     Dates: start: 20071102, end: 20071103
  4. RISPERIDONE [Suspect]
     Indication: DELUSION
     Dosage: 1 MG ; 2 MG
     Dates: start: 20071104, end: 20071105
  5. FELODIPINE [Concomitant]
  6. TORSEMIDE [Concomitant]

REACTIONS (1)
  - PARKINSONISM [None]
